FAERS Safety Report 6099698-4 (Version None)
Quarter: 2009Q1

REPORT INFORMATION
  Report Type: 
  Country: None (occurrence: None)
  Receive Date: 20090226
  Receipt Date: 20090213
  Transmission Date: 20090719
  Serious: Yes (Death, Life-Threatening, Hospitalization)
  Sender: FDA-Public Use
  Company Number: 2009000436

PATIENT
  Age: 33 Year
  Sex: Male
  Weight: 92.0348 kg

DRUGS (6)
  1. ERLOTINIB (ERTOTINIB) (TABLET) (ERLOTINIB) [Suspect]
     Indication: NON-SMALL CELL LUNG CANCER
     Dosage: 150 MG, QD, ORAL
     Route: 048
     Dates: start: 20090114, end: 20090125
  2. SUNITINIB/PLACEBO [Suspect]
     Indication: NON-SMALL CELL LUNG CANCER
     Dosage: 37.5 MG, QD, ORAL
     Route: 048
  3. DURAGESIC-100 [Concomitant]
  4. NIMESULIDE (NIMESULIDE) [Concomitant]
  5. CITALOPRAM HYDROBROMIDE [Concomitant]
  6. FRAXIPARINE (HEPARIN-FRACTION, CALCIUM SALT) [Concomitant]

REACTIONS (2)
  - HAEMOPTYSIS [None]
  - LOSS OF CONSCIOUSNESS [None]
